FAERS Safety Report 7228369-3 (Version None)
Quarter: 2011Q1

REPORT INFORMATION
  Report Type: 
  Country: None (occurrence: None)
  Receive Date: 20110114
  Receipt Date: 20110106
  Transmission Date: 20110831
  Serious: Yes (Death)
  Sender: FDA-Public Use
  Company Number: US-B.I. PHARMACEUTICALS,INC./RIDGEFIELD-2011-DE-00357GD

PATIENT
  Age: 59 Year
  Sex: Female

DRUGS (4)
  1. MELOXICAM [Suspect]
     Route: 048
  2. HYDROCHLOROTHIAZIDE/LISINOPRIL [Suspect]
     Route: 048
  3. ACETAMINOPHEN AND OXYCODONE HCL [Suspect]
     Route: 048
  4. AMITRIPTYLINE [Suspect]
     Route: 048

REACTIONS (4)
  - INTENTIONAL DRUG MISUSE [None]
  - CARDIAC ARREST [None]
  - RESPIRATORY ARREST [None]
  - COMPLETED SUICIDE [None]
